FAERS Safety Report 6855572-4 (Version None)
Quarter: 2010Q3

REPORT INFORMATION
  Report Type: 
  Country: None (occurrence: None)
  Receive Date: 20100719
  Receipt Date: 20100707
  Transmission Date: 20110219
  Serious: Yes (Life-Threatening, Hospitalization, Other)
  Sender: FDA-Public Use
  Company Number: US-JNJFOC-20100304176

PATIENT
  Sex: Female
  Weight: 149.69 kg

DRUGS (28)
  1. REMICADE [Suspect]
     Indication: PSORIASIS
     Route: 042
  2. REMICADE [Suspect]
     Route: 042
  3. REMICADE [Suspect]
     Indication: PSORIATIC ARTHROPATHY
     Route: 042
  4. REMICADE [Suspect]
     Route: 042
  5. PLAQUENIL [Concomitant]
  6. PREVACID [Concomitant]
  7. LORTAB [Concomitant]
     Dosage: DOSE 7.5/500
  8. DETROL LA [Concomitant]
  9. CLIMARA [Concomitant]
     Dosage: DOSE 0.5
  10. CYMBALTA [Concomitant]
  11. CYMBALTA [Concomitant]
  12. METFORMIN HCL [Concomitant]
  13. LYRICA [Concomitant]
  14. SYMBICORT [Concomitant]
     Dosage: 160/4 2 PUFFS BID
  15. MAXAIR [Concomitant]
     Route: 055
  16. SPIRIVA [Concomitant]
  17. HUMIRA [Concomitant]
     Route: 050
  18. ALDACTONE [Concomitant]
  19. ALDACTONE [Concomitant]
  20. TUSSIONEX [Concomitant]
     Dosage: DOSE 1 TSP EVERY 12 HOURS
  21. GABAPENTIN [Concomitant]
  22. BYETTA [Concomitant]
     Dosage: 10MCG/0.04 ML TWICE DAILY
     Route: 058
  23. CALCIUM WITH VITAMIN D [Concomitant]
  24. MULTI-VITAMINS [Concomitant]
  25. TYLENOL [Concomitant]
     Indication: PREMEDICATION
     Route: 048
  26. BENICAR HCT [Concomitant]
     Dosage: 20 PER 12.5
  27. ESTRADIOL [Concomitant]
  28. OMEPRAZOLE [Concomitant]

REACTIONS (7)
  - ARTHRALGIA [None]
  - CARDIAC FAILURE CONGESTIVE [None]
  - CHEST PAIN [None]
  - DYSLIPIDAEMIA [None]
  - ESCHERICHIA URINARY TRACT INFECTION [None]
  - MYALGIA [None]
  - RESPIRATORY FAILURE [None]
